FAERS Safety Report 24763991 (Version 4)
Quarter: 2025Q1

REPORT INFORMATION
  Report Type: Report from Study
  Country: US (occurrence: US)
  Receive Date: 20241223
  Receipt Date: 20250226
  Transmission Date: 20250408
  Serious: Yes (Hospitalization, Other)
  Sender: ACADIA PHARMACEUTICALS
  Company Number: US-ACADIA PHARMACEUTICALS INC.-ACA-2024-PIM-008334

PATIENT
  Age: 75 Year
  Sex: Male

DRUGS (13)
  1. NUPLAZID [Suspect]
     Active Substance: PIMAVANSERIN TARTRATE
     Indication: Parkinson^s disease psychosis
     Dosage: 34 MILLIGRAM, QD
     Route: 048
  2. NUPLAZID [Suspect]
     Active Substance: PIMAVANSERIN TARTRATE
     Indication: Parkinson^s disease
  3. TAMIFLU [Concomitant]
     Active Substance: OSELTAMIVIR PHOSPHATE
  4. BENZONATATE [Concomitant]
     Active Substance: BENZONATATE
  5. MAGNESIUM [Concomitant]
     Active Substance: MAGNESIUM
  6. LOVASTATIN [Concomitant]
     Active Substance: LOVASTATIN
  7. QUETIAPINE FUMARATE [Concomitant]
     Active Substance: QUETIAPINE FUMARATE
  8. FENOFIBRATE [Concomitant]
     Active Substance: FENOFIBRATE
  9. LOSARTAN POTASSIUM [Concomitant]
     Active Substance: LOSARTAN POTASSIUM
  10. RIVASTIGMINE [Concomitant]
     Active Substance: RIVASTIGMINE
  11. MINERALS\VITAMINS [Concomitant]
     Active Substance: MINERALS\VITAMINS
  12. VITAMIN D2 [Concomitant]
     Active Substance: ERGOCALCIFEROL
  13. FISH OIL [Concomitant]
     Active Substance: FISH OIL

REACTIONS (12)
  - Delirium [Unknown]
  - Urinary tract infection [Unknown]
  - Dementia with Lewy bodies [Unknown]
  - Viral infection [Unknown]
  - Nasopharyngitis [Unknown]
  - Influenza [Recovered/Resolved]
  - Delusion [Not Recovered/Not Resolved]
  - Adverse event [Unknown]
  - Lethargy [Unknown]
  - Asthenia [Unknown]
  - Aggression [Unknown]
  - Therapeutic product effect decreased [Unknown]

NARRATIVE: CASE EVENT DATE: 20241207
